FAERS Safety Report 15358509 (Version 2)
Quarter: 2018Q3

REPORT INFORMATION
  Report Type: Spontaneous
  Country: JP (occurrence: JP)
  Receive Date: 20180906
  Receipt Date: 20180924
  Transmission Date: 20181010
  Serious: Yes (Hospitalization)
  Sender: FDA-Public Use
  Company Number: PHHY2018JP086251

PATIENT
  Age: 79 Year
  Sex: Male

DRUGS (2)
  1. CARBOPLATIN. [Suspect]
     Active Substance: CARBOPLATIN
     Indication: HYPOPHARYNGEAL CANCER
     Dosage: UNK
     Route: 065
  2. 5 FLUOROURACIL [Suspect]
     Active Substance: FLUOROURACIL
     Indication: HYPOPHARYNGEAL CANCER
     Dosage: UNK
     Route: 065

REACTIONS (11)
  - Gastritis bacterial [Recovered/Resolved]
  - Pelvic abscess [Recovering/Resolving]
  - Pyrexia [Recovered/Resolved]
  - Pneumatosis intestinalis [Recovered/Resolved]
  - Bloody discharge [Recovered/Resolved]
  - Diarrhoea [Recovered/Resolved]
  - Vomiting [Recovered/Resolved]
  - Dysphagia [Recovering/Resolving]
  - Portal venous gas [Recovered/Resolved]
  - Abdominal pain [Recovered/Resolved]
  - Peritonitis [Recovering/Resolving]
